FAERS Safety Report 8840894 (Version 2)
Quarter: 2015Q1

REPORT INFORMATION
  Report Type: Report from Study
  Country: US (occurrence: US)
  Receive Date: 20121015
  Receipt Date: 20150209
  Transmission Date: 20150721
  Serious: Yes (Hospitalization)
  Sender: FDA-Public Use
  Company Number: US-ROCHE-1120036

PATIENT
  Sex: Male
  Weight: 12 kg

DRUGS (7)
  1. CORTEF [Concomitant]
     Active Substance: HYDROCORTISONE
     Route: 065
  2. NUTROPIN AQ [Suspect]
     Active Substance: SOMATROPIN
     Route: 058
  3. DESMOPRESSIN ACETATE. [Concomitant]
     Active Substance: DESMOPRESSIN ACETATE
     Dosage: 0.025ML OF A 10MCG/ML PREPARATION
     Route: 065
  4. REGLAN [Concomitant]
     Active Substance: METOCLOPRAMIDE HYDROCHLORIDE
  5. NUTROPIN AQ [Suspect]
     Active Substance: SOMATROPIN
     Indication: HYPOPITUITARISM
     Route: 058
  6. SYNTHROID [Concomitant]
     Active Substance: LEVOTHYROXINE SODIUM
     Route: 065
  7. PROTROPIN [Suspect]
     Active Substance: SOMATREM
     Indication: PRODUCT USED FOR UNKNOWN INDICATION
     Route: 065

REACTIONS (6)
  - Varicella [Unknown]
  - Medication error [Unknown]
  - Device related infection [Unknown]
  - Pyrexia [Unknown]
  - Malaise [Unknown]
  - Pollakiuria [Unknown]
